FAERS Safety Report 4502594-4 (Version None)
Quarter: 2004Q4

REPORT INFORMATION
  Report Type: 
  Country: None (occurrence: None)
  Receive Date: 20041110
  Receipt Date: 20041027
  Transmission Date: 20050328
  Serious: Yes (Hospitalization)
  Sender: FDA-Public Use
  Company Number: BRO-007751

PATIENT
  Age: 66 Year
  Sex: Male

DRUGS (10)
  1. IOPAMIDOL / IOPAMIRON 370 (BATCH # (S):) [Suspect]
     Indication: ARTERIOGRAM CORONARY
     Dosage: 105 ML INTRACORONARY/A FEW MINUTES
     Route: 022
     Dates: start: 20010821, end: 20010821
  2. SIGMART [Concomitant]
  3. ISOSORBIDE MONONITRATE [Concomitant]
  4. BUFFERIN [Concomitant]
  5. ALPRAZOLAM [Concomitant]
  6. KAMAG [Concomitant]
  7. GASTER, (FAMOTIDINE) [Concomitant]
  8. HALCION [Concomitant]
  9. TICLOPIDINE HCL [Concomitant]
  10. MEXITIL [Concomitant]

REACTIONS (17)
  - CONJUNCTIVAL HYPERAEMIA [None]
  - CONTRAST MEDIA REACTION [None]
  - CYTOMEGALOVIRUS INFECTION [None]
  - DERMATITIS EXFOLIATIVE [None]
  - ENANTHEMA [None]
  - EOSINOPHIL COUNT INCREASED [None]
  - ERYTHEMA [None]
  - HAEMODIALYSIS [None]
  - HYPERSENSITIVITY [None]
  - HYPERTHERMIA [None]
  - LYMPHADENOPATHY [None]
  - LYMPHOCYTE MORPHOLOGY ABNORMAL [None]
  - MONOCYTE COUNT INCREASED [None]
  - POST PROCEDURAL COMPLICATION [None]
  - RASH GENERALISED [None]
  - TRANSAMINASES INCREASED [None]
  - WHITE BLOOD CELL COUNT DECREASED [None]
